FAERS Safety Report 11288078 (Version 1)
Quarter: 2015Q3

REPORT INFORMATION
  Report Type: Spontaneous
  Country: US (occurrence: None)
  Receive Date: 20150720
  Receipt Date: 20150720
  Transmission Date: 20151125
  Serious: Yes (Life-Threatening, Hospitalization, Other)
  Sender: FDA-Public Use
  Company Number: None

PATIENT
  Age: 33 Year
  Sex: Male
  Weight: 77.11 kg

DRUGS (10)
  1. KLONOPIN [Concomitant]
     Active Substance: CLONAZEPAM
  2. ULTRAM [Concomitant]
     Active Substance: TRAMADOL HYDROCHLORIDE
  3. SEROQUEL FUMARATE [Concomitant]
  4. BUSBAR [Concomitant]
  5. MOTRIN [Concomitant]
     Active Substance: IBUPROFEN
  6. VIVITROL [Suspect]
     Active Substance: NALTREXONE
     Indication: DRUG DEPENDENCE
     Dosage: 28 DAYS APART
     Route: 030
  7. FLEXERIL [Concomitant]
     Active Substance: CYCLOBENZAPRINE HYDROCHLORIDE
  8. ZANTAC [Concomitant]
     Active Substance: RANITIDINE HYDROCHLORIDE
  9. SEROQUEL [Concomitant]
     Active Substance: QUETIAPINE FUMARATE
  10. BENADRYL [Concomitant]
     Active Substance: DIPHENHYDRAMINE HYDROCHLORIDE

REACTIONS (5)
  - Injection site swelling [None]
  - Injection site pain [None]
  - Product quality issue [None]
  - Gait disturbance [None]
  - Hyperaesthesia [None]

NARRATIVE: CASE EVENT DATE: 20150711
